FAERS Safety Report 10497655 (Version 1)
Quarter: 2014Q4

REPORT INFORMATION
  Report Type: Spontaneous
  Country: US (occurrence: None)
  Receive Date: 20141003
  Receipt Date: 20141003
  Transmission Date: 20150528
  Serious: Yes (Other)
  Sender: FDA-Public Use
  Company Number: None

PATIENT
  Age: 38 Year
  Sex: Male
  Weight: 73.5 kg

DRUGS (15)
  1. CHEW-C [Concomitant]
  2. FUROSEMIDE. [Concomitant]
     Active Substance: FUROSEMIDE
  3. LEVOTHYROXINE [Concomitant]
     Active Substance: LEVOTHYROXINE
  4. ZIAGEN [Concomitant]
     Active Substance: ABACAVIR SULFATE
  5. SOVALDI [Concomitant]
     Active Substance: SOFOSBUVIR
  6. EMTRIVA [Concomitant]
     Active Substance: EMTRICITABINE
  7. PROMACTA [Concomitant]
     Active Substance: ELTROMBOPAG OLAMINE
  8. MVI [Concomitant]
     Active Substance: VITAMINS
  9. ISENTRESS [Concomitant]
     Active Substance: RALTEGRAVIR POTASSIUM
  10. ELOCTATE [Suspect]
     Active Substance: (1-743)-(1638-2332)-BLOOD-COAGULATION FACTOR VIII (SYNTHETIC HUMAN) FUSION PROTEIN WITH IMMUNOGLOBULIN G1 (SYNTHETIC HUMAN FC DOMAIN FRAGMENT), (1444-6^),(1447-9^)-BIS(DISULFIDE) WITH IMMUNOGLOBULIN G1 (SYNTHETIC HUMAN FC DOMAIN FRAGMENT)
     Indication: FACTOR VIII DEFICIENCY
     Dosage: 3177 IU, EVERY WED/SATURDAY, INTRAVENOUS
     Route: 042
     Dates: start: 20140924, end: 20140924
  11. DACLATASVIR [Concomitant]
     Active Substance: DACLATASVIR
  12. DYRENIUM [Concomitant]
     Active Substance: TRIAMTERENE
  13. KLOR-CON M20 [Concomitant]
     Active Substance: POTASSIUM CHLORIDE
  14. ALLOPURINOL. [Concomitant]
     Active Substance: ALLOPURINOL
  15. PROPRANOLOL [Concomitant]
     Active Substance: PROPRANOLOL\PROPRANOLOL HYDROCHLORIDE

REACTIONS (6)
  - Nausea [None]
  - Abdominal pain upper [None]
  - Diarrhoea [None]
  - Dizziness [None]
  - Headache [None]
  - Pyrexia [None]

NARRATIVE: CASE EVENT DATE: 20140924
